FAERS Safety Report 15074854 (Version 1)
Quarter: 2018Q2

REPORT INFORMATION
  Report Type: Spontaneous
  Country: US (occurrence: US)
  Receive Date: 20180627
  Receipt Date: 20180627
  Transmission Date: 20180711
  Serious: Yes (Other)
  Sender: FDA-Public Use
  Company Number: US-SAOL THERAPEUTICS-2017SAO01411

PATIENT
  Age: 55 Year
  Sex: Male
  Weight: 90.7 kg

DRUGS (5)
  1. MARCAINE [Suspect]
     Active Substance: BUPIVACAINE HYDROCHLORIDE
     Dosage: 20.982 MG, \DAY
     Route: 037
  2. COMPOUNDED BACLOFEN [Suspect]
     Active Substance: BACLOFEN
     Dosage: 462 ?G, \DAY
     Route: 037
  3. VITAMIN D [Concomitant]
     Active Substance: CHOLECALCIFEROL
  4. CLONIDINE. [Suspect]
     Active Substance: CLONIDINE
     Dosage: 357 ?G, \DAY
     Route: 037
  5. DILAUDID [Suspect]
     Active Substance: HYDROMORPHONE HYDROCHLORIDE
     Dosage: 18.513 MG, \DAY
     Route: 037

REACTIONS (3)
  - Therapy non-responder [Unknown]
  - Device occlusion [Unknown]
  - Drug withdrawal syndrome [Unknown]

NARRATIVE: CASE EVENT DATE: 201608
